FAERS Safety Report 16635547 (Version 1)
Quarter: 2019Q3

REPORT INFORMATION
  Report Type: Spontaneous
  Country: US (occurrence: US)
  Receive Date: 20190726
  Receipt Date: 20190726
  Transmission Date: 20191004
  Serious: No
  Sender: FDA-Public Use
  Company Number: US-CELGENEUS-USA-20190707316

PATIENT
  Age: 43 Year
  Sex: Female

DRUGS (3)
  1. METHIMAZOLE. [Concomitant]
     Active Substance: METHIMAZOLE
     Indication: PRODUCT USED FOR UNKNOWN INDICATION
     Route: 065
  2. OTEZLA [Suspect]
     Active Substance: APREMILAST
     Indication: OFF LABEL USE
  3. OTEZLA [Suspect]
     Active Substance: APREMILAST
     Indication: IMPAIRED SELF-CARE
     Dosage: 60 MILLIGRAM
     Route: 048
     Dates: start: 20190226

REACTIONS (2)
  - Arthralgia [Unknown]
  - Product dose omission [Unknown]

NARRATIVE: CASE EVENT DATE: 2019
